FAERS Safety Report 23417089 (Version 1)
Quarter: 2024Q1

REPORT INFORMATION
  Report Type: Spontaneous
  Country: PT (occurrence: PT)
  Receive Date: 20240118
  Receipt Date: 20240118
  Transmission Date: 20240410
  Serious: Yes (Hospitalization, Other)
  Sender: FDA-Public Use
  Company Number: PT-TOWA-202304113

PATIENT
  Age: 50 Year
  Sex: Female

DRUGS (29)
  1. CHLORPROMAZINE [Suspect]
     Active Substance: CHLORPROMAZINE
     Indication: Product used for unknown indication
     Dosage: 100.000MG QD
     Route: 065
     Dates: start: 20220622
  2. CLONAZEPAM [Suspect]
     Active Substance: CLONAZEPAM
     Dosage: ONCE A DAY
     Route: 065
     Dates: start: 20220622
  3. CLONAZEPAM [Suspect]
     Active Substance: CLONAZEPAM
     Dosage: ? + ? + 1
     Route: 065
  4. CLONAZEPAM [Suspect]
     Active Substance: CLONAZEPAM
     Indication: Product used for unknown indication
     Dosage: ? 2 ONCE A DAY
     Route: 065
     Dates: start: 20220818
  5. GABAPENTIN [Suspect]
     Active Substance: GABAPENTIN
     Indication: Product used for unknown indication
     Dosage: ONCE A DAY
     Route: 065
  6. GABAPENTIN [Suspect]
     Active Substance: GABAPENTIN
     Dosage: 3 TIMES A DAY
     Route: 065
     Dates: start: 20220622
  7. OLANZAPINE [Suspect]
     Active Substance: OLANZAPINE
     Indication: Product used for unknown indication
     Dosage: 15.000MG QD
     Route: 065
     Dates: start: 20220921
  8. OLANZAPINE [Suspect]
     Active Substance: OLANZAPINE
     Dosage: 15.000MG QD
     Route: 065
     Dates: end: 20220707
  9. PAROXETINE [Suspect]
     Active Substance: PAROXETINE
     Dosage: 20.000MG QD
     Route: 065
     Dates: start: 20220707, end: 20220818
  10. PAROXETINE [Suspect]
     Active Substance: PAROXETINE
     Dosage: 20.000MG QD
     Route: 065
     Dates: end: 20220622
  11. PAROXETINE [Suspect]
     Active Substance: PAROXETINE
     Indication: Product used for unknown indication
     Dosage: 3 TIMES A DAY
     Route: 065
     Dates: end: 20220707
  12. PAROXETINE [Suspect]
     Active Substance: PAROXETINE
     Dosage: TWICE A DAY
     Route: 065
     Dates: start: 20220818, end: 20220921
  13. QUETIAPINE [Suspect]
     Active Substance: QUETIAPINE
     Dosage: 100.000MG QD
     Route: 065
     Dates: end: 20220622
  14. QUETIAPINE [Suspect]
     Active Substance: QUETIAPINE
     Dosage: 100.000MG QD
     Route: 065
  15. QUETIAPINE [Suspect]
     Active Substance: QUETIAPINE
     Dosage: 3 TIMES A DAY
     Route: 065
     Dates: end: 20220707
  16. QUETIAPINE [Suspect]
     Active Substance: QUETIAPINE
     Indication: Product used for unknown indication
     Dosage: 5 TIMES A DAY
     Route: 065
     Dates: start: 20220707, end: 20220818
  17. QUETIAPINE [Suspect]
     Active Substance: QUETIAPINE
     Dosage: 200 MG, QD
     Route: 065
     Dates: end: 20220622
  18. RISPERIDONE [Suspect]
     Active Substance: RISPERIDONE
     Indication: Product used for unknown indication
     Dosage: 1.000MG QD
     Route: 065
     Dates: start: 20220818
  19. CHOLECALCIFEROL [Concomitant]
     Active Substance: CHOLECALCIFEROL
     Indication: Product used for unknown indication
     Dosage: 1.000DF
     Route: 065
  20. EMPAGLIFLOZIN\METFORMIN HYDROCHLORIDE [Concomitant]
     Active Substance: EMPAGLIFLOZIN\METFORMIN HYDROCHLORIDE
     Indication: Product used for unknown indication
     Dosage: TWICE A DAY
     Route: 065
  21. FENOFIBRATE [Concomitant]
     Active Substance: FENOFIBRATE
     Indication: Product used for unknown indication
     Dosage: QD
     Route: 065
  22. FOLIC ACID [Concomitant]
     Active Substance: FOLIC ACID
     Indication: Product used for unknown indication
     Dosage: 5.000MG QD
     Route: 065
  23. GLICLAZIDE [Concomitant]
     Active Substance: GLICLAZIDE
     Indication: Product used for unknown indication
     Dosage: 30.000MG QD
     Route: 065
  24. LEVOTHYROXINE [Concomitant]
     Active Substance: LEVOTHYROXINE\LEVOTHYROXINE SODIUM
     Indication: Product used for unknown indication
     Dosage: QD
     Route: 065
  25. METFORMIN [Concomitant]
     Active Substance: METFORMIN HYDROCHLORIDE
     Indication: Product used for unknown indication
     Dosage: 1000.000MG QD
     Route: 065
  26. PANTOPRAZOLE [Concomitant]
     Active Substance: PANTOPRAZOLE
     Indication: Product used for unknown indication
     Dosage: 20.000MG QD
     Route: 065
  27. PROPRANOLOL [Concomitant]
     Active Substance: PROPRANOLOL HYDROCHLORIDE
     Indication: Product used for unknown indication
     Dosage: 40.000MG QD
     Route: 065
  28. ROSUVASTATIN [Concomitant]
     Active Substance: ROSUVASTATIN
     Indication: Product used for unknown indication
     Dosage: 10.000MG QD
     Route: 065
  29. FLUTICASONE PROPIONATE\SALMETEROL XINAFOATE [Concomitant]
     Active Substance: FLUTICASONE PROPIONATE\SALMETEROL XINAFOATE
     Indication: Product used for unknown indication
     Dosage: TWICE A DAY
     Route: 065

REACTIONS (20)
  - Violence-related symptom [Recovered/Resolved]
  - Hallucination, auditory [Recovered/Resolved]
  - Suicidal ideation [Recovered/Resolved]
  - Self-injurious ideation [Recovered/Resolved]
  - Panic attack [Unknown]
  - Irritability [Unknown]
  - Weight decreased [Unknown]
  - Affective disorder [Recovered/Resolved]
  - Anhedonia [Recovering/Resolving]
  - Pseudohallucination [Recovered/Resolved]
  - Suicidal ideation [Unknown]
  - Fatigue [Unknown]
  - Anxiety [Unknown]
  - Middle insomnia [Unknown]
  - Nightmare [Unknown]
  - Depressed mood [Unknown]
  - Agitation [Unknown]
  - Initial insomnia [Unknown]
  - Accidental overdose [Unknown]
  - Somnolence [Unknown]

NARRATIVE: CASE EVENT DATE: 20220622
